FAERS Safety Report 13680299 (Version 1)
Quarter: 2017Q2

REPORT INFORMATION
  Report Type: Spontaneous
  Country: US (occurrence: US)
  Receive Date: 20170622
  Receipt Date: 20170622
  Transmission Date: 20170830
  Serious: No
  Sender: FDA-Public Use
  Company Number: US-BRISTOL-MYERS SQUIBB COMPANY-BMS-2017-052546

PATIENT
  Age: 48 Year
  Sex: Female
  Weight: 85.26 kg

DRUGS (2)
  1. ORENCIA [Suspect]
     Active Substance: ABATACEPT
     Indication: RHEUMATOID ARTHRITIS
     Dosage: UNK UNK, QWK
     Route: 058
     Dates: start: 20170530, end: 20170607
  2. PREDNISONE. [Concomitant]
     Active Substance: PREDNISONE
     Indication: PRODUCT USED FOR UNKNOWN INDICATION
     Dosage: 5 MG, UNK
     Route: 065

REACTIONS (6)
  - Tremor [Unknown]
  - Abdominal discomfort [Unknown]
  - Somnolence [Unknown]
  - Malaise [Unknown]
  - Inflammation [Unknown]
  - Hypertension [Unknown]

NARRATIVE: CASE EVENT DATE: 20170530
